FAERS Safety Report 7135145-9 (Version None)
Quarter: 2010Q4

REPORT INFORMATION
  Report Type: 
  Country: None (occurrence: None)
  Receive Date: 20101203
  Receipt Date: 20101201
  Transmission Date: 20110411
  Serious: No
  Sender: FDA-Public Use
  Company Number: US-PFIZER INC-2010162194

PATIENT
  Sex: Male

DRUGS (1)
  1. VIAGRA [Suspect]
     Indication: PROSTATIC OPERATION
     Dosage: 50 MG, 1X/DAY
     Route: 048
     Dates: start: 20101118, end: 20101101

REACTIONS (2)
  - HYPERSENSITIVITY [None]
  - RASH [None]
